FAERS Safety Report 9875039 (Version 3)
Quarter: 2014Q1

REPORT INFORMATION
  Report Type: Report from Study
  Country: AU (occurrence: AU)
  Receive Date: 20140206
  Receipt Date: 20140322
  Transmission Date: 20141002
  Serious: Yes (Death, Other)
  Sender: FDA-Public Use
  Company Number: PHHY2014AU013177

PATIENT
  Age: 62 Year
  Sex: Male

DRUGS (1)
  1. ACLASTA [Suspect]
     Indication: OSTEOPOROSIS
     Dosage: 5 MG
     Route: 042
     Dates: start: 20130202

REACTIONS (6)
  - Gastrointestinal carcinoma [Fatal]
  - Peritonitis [Fatal]
  - Apnoea [Fatal]
  - Pleural calcification [Fatal]
  - Mediastinal shift [Unknown]
  - Scoliosis [Unknown]
